FAERS Safety Report 9265082 (Version 1)
Quarter: 2013Q2

REPORT INFORMATION
  Report Type: Spontaneous
  Country: JP (occurrence: JP)
  Receive Date: 20130501
  Receipt Date: 20130501
  Transmission Date: 20140414
  Serious: Yes (Other)
  Sender: FDA-Public Use
  Company Number: JP-ASTELLAS-2013JP005503

PATIENT
  Age: 81 Year
  Sex: Female

DRUGS (3)
  1. FUNGUARD [Suspect]
     Indication: SYSTEMIC MYCOSIS
     Dosage: UNK
     Route: 065
     Dates: start: 2008, end: 2008
  2. CEFAZOLIN (UNSPECIFIED) [Concomitant]
     Dosage: UNK
     Route: 065
     Dates: start: 200811
  3. DEXAMETHASONE [Concomitant]
     Dosage: UNK
     Route: 061
     Dates: start: 200811

REACTIONS (1)
  - Erythema [Recovering/Resolving]
